FAERS Safety Report 10050883 (Version 2)
Quarter: 2014Q2

REPORT INFORMATION
  Report Type: Report from Study
  Country: BR (occurrence: BR)
  Receive Date: 20140401
  Receipt Date: 20140529
  Transmission Date: 20141212
  Serious: Yes (Other)
  Sender: FDA-Public Use
  Company Number: BR-BAYER-2014-045859

PATIENT
  Sex: Male

DRUGS (1)
  1. RADIUM-223 DICHLORIDE [Suspect]
     Indication: PROSTATE CANCER METASTATIC
     Dosage: UNK

REACTIONS (2)
  - Visual acuity reduced [None]
  - Retinal toxicity [None]
